FAERS Safety Report 9014558 (Version 1)
Quarter: 2013Q1

REPORT INFORMATION
  Report Type: Spontaneous
  Country: US (occurrence: US)
  Receive Date: 20130115
  Receipt Date: 20130115
  Transmission Date: 20140127
  Serious: Yes (Hospitalization)
  Sender: FDA-Public Use
  Company Number: US-AMGEN-USASP2013002322

PATIENT
  Age: 63 Year
  Sex: Male

DRUGS (3)
  1. NEULASTA [Suspect]
     Indication: PROPHYLAXIS
     Dosage: 6 MG, Q3WK
     Route: 042
     Dates: start: 20120814, end: 20130110
  2. ADRIAMYCIN                         /00330901/ [Concomitant]
     Dosage: 75 MG/M2, Q3WK
     Route: 042
  3. LOVENOX [Concomitant]
     Dosage: UNK

REACTIONS (2)
  - Febrile neutropenia [Recovered/Resolved]
  - Nasopharyngitis [Unknown]
